FAERS Safety Report 7715026-X (Version None)
Quarter: 2011Q3

REPORT INFORMATION
  Report Type: 
  Country: None (occurrence: None)
  Receive Date: 20110829
  Receipt Date: 20110608
  Transmission Date: 20111222
  Serious: No
  Sender: FDA-Public Use
  Company Number: US-ASTRAZENECA-2011SE35038

PATIENT
  Age: 50 Year
  Sex: Female

DRUGS (1)
  1. VIMOVO [Suspect]
     Dosage: 500/20 MG, DAILY
     Route: 048

REACTIONS (1)
  - INCREASED VISCOSITY OF BRONCHIAL SECRETION [None]
